FAERS Safety Report 18996653 (Version 1)
Quarter: 2021Q1

REPORT INFORMATION
  Report Type: Spontaneous
  Country: JP (occurrence: JP)
  Receive Date: 20210311
  Receipt Date: 20210311
  Transmission Date: 20210420
  Serious: Yes (Other)
  Sender: FDA-Public Use
  Company Number: JP-TEVA-2021-JP-000885J

PATIENT
  Sex: Male

DRUGS (1)
  1. DUTASTERIDE CAP. 0.5MG AV ^TAKEDA TEVA^ [Suspect]
     Active Substance: DUTASTERIDE
     Indication: PRODUCT USED FOR UNKNOWN INDICATION
     Dosage: DOSAGE IS UNKNOWN
     Route: 048

REACTIONS (2)
  - Oesophageal carcinoma [Unknown]
  - Dysphagia [Unknown]
